FAERS Safety Report 10746301 (Version 1)
Quarter: 2015Q1

REPORT INFORMATION
  Report Type: Spontaneous
  Country: US (occurrence: None)
  Receive Date: 20150120
  Receipt Date: 20150120
  Transmission Date: 20150721
  Serious: No
  Sender: FDA-Public Use
  Company Number: AEGR000795

PATIENT
  Age: 54 Year
  Sex: Male
  Weight: 99.8 kg

DRUGS (2)
  1. JUXTAPID [Suspect]
     Active Substance: LOMITAPIDE MESYLATE
     Route: 048
     Dates: start: 201409
  2. ZETIA [Concomitant]
     Active Substance: EZETIMIBE

REACTIONS (2)
  - Constipation [None]
  - Inappropriate schedule of drug administration [None]

NARRATIVE: CASE EVENT DATE: 201409
